FAERS Safety Report 26059652 (Version 1)
Quarter: 2025Q4

REPORT INFORMATION
  Report Type: Spontaneous
  Country: EU (occurrence: EU)
  Receive Date: 20251118
  Receipt Date: 20251118
  Transmission Date: 20260118
  Serious: Yes (Other)
  Sender: PFIZER
  Company Number: None

PATIENT
  Age: 73 Year
  Sex: Female
  Weight: 59 kg

DRUGS (3)
  1. LOXAPINE [Suspect]
     Active Substance: LOXAPINE
     Dosage: 25 MG, 1X/DAY
     Route: 048
     Dates: start: 20220113, end: 2025
  2. LORAZEPAM [Suspect]
     Active Substance: LORAZEPAM
     Dosage: 2.5 MG, 3X/DAY FREQ:8 H
     Route: 048
     Dates: start: 20130618
  3. PIPAMPERONE [Suspect]
     Active Substance: PIPAMPERONE
     Dosage: 40 MG, 3X/DAY FREQ:8 H
     Route: 048
     Dates: start: 20130605

REACTIONS (1)
  - Pancytopenia [Not Recovered/Not Resolved]

NARRATIVE: CASE EVENT DATE: 20241201
